FAERS Safety Report 22060540 (Version 2)
Quarter: 2023Q2

REPORT INFORMATION
  Report Type: Report from Study
  Country: CA (occurrence: None)
  Receive Date: 20230303
  Receipt Date: 20230414
  Transmission Date: 20230722
  Serious: Yes (Death, Other)
  Sender: FDA-Public Use
  Company Number: 2023A049594

PATIENT
  Sex: Female

DRUGS (9)
  1. FASENRA [Suspect]
     Active Substance: BENRALIZUMAB
     Indication: Asthma
     Route: 058
     Dates: start: 20220726
  2. FASENRA [Suspect]
     Active Substance: BENRALIZUMAB
     Indication: Asthma
     Route: 058
     Dates: start: 20221116
  3. PULMOZYME [Concomitant]
     Active Substance: DORNASE ALFA
  4. CAYSTON [Concomitant]
     Active Substance: AZTREONAM
  5. NUCALA [Concomitant]
     Active Substance: MEPOLIZUMAB
  6. VENTOLIN [Concomitant]
     Active Substance: ALBUTEROL SULFATE
  7. SPIRIVA RESPIMAT [Concomitant]
     Active Substance: TIOTROPIUM BROMIDE
  8. PULMICORT TURBUHALER [Concomitant]
     Active Substance: BUDESONIDE
  9. ADVAIR HFA [Concomitant]
     Active Substance: FLUTICASONE PROPIONATE\SALMETEROL XINAFOATE

REACTIONS (1)
  - Death [Fatal]
